FAERS Safety Report 6208740-9 (Version None)
Quarter: 2009Q2

REPORT INFORMATION
  Report Type: 
  Country: None (occurrence: None)
  Receive Date: 20090529
  Receipt Date: 20090519
  Transmission Date: 20091009
  Serious: Yes (Hospitalization, Other)
  Sender: FDA-Public Use
  Company Number: US-ABBOTT-09P-163-0574787-00

PATIENT
  Sex: Male

DRUGS (3)
  1. DEPAKOTE [Interacting]
     Indication: CONVULSION
     Route: 048
     Dates: start: 19990101, end: 20090517
  2. DEPAKOTE [Suspect]
     Indication: CONVULSION
     Route: 050
     Dates: start: 20090518
  3. MEROPENEM [Interacting]
     Indication: PNEUMONIA KLEBSIELLA
     Route: 042
     Dates: start: 20090511, end: 20090519

REACTIONS (6)
  - DEEP VEIN THROMBOSIS [None]
  - DRUG LEVEL DECREASED [None]
  - LABELLED DRUG-DRUG INTERACTION MEDICATION ERROR [None]
  - PNEUMONIA KLEBSIELLA [None]
  - PYREXIA [None]
  - RESPIRATORY FAILURE [None]
